FAERS Safety Report 7875992-9 (Version None)
Quarter: 2011Q4

REPORT INFORMATION
  Report Type: 
  Country: None (occurrence: None)
  Receive Date: 20111031
  Receipt Date: 20111021
  Transmission Date: 20120403
  Serious: Yes (Death, Other)
  Sender: FDA-Public Use
  Company Number: JP-CELGENEUS-087-50794-11041987

PATIENT
  Sex: Male
  Weight: 60 kg

DRUGS (13)
  1. VFEND [Concomitant]
     Route: 065
     Dates: start: 20110406, end: 20110416
  2. MUCODYNE [Concomitant]
     Route: 065
     Dates: start: 20110408, end: 20110416
  3. VIDAZA [Suspect]
     Indication: MYELODYSPLASTIC SYNDROME
     Dosage: 75 MILLIGRAM/SQ. METER
     Route: 041
     Dates: start: 20110317, end: 20110323
  4. GLUFAST [Concomitant]
     Route: 065
  5. MAGNESIUM [Concomitant]
     Route: 065
     Dates: start: 20110513
  6. FLUCONAZOLE [Concomitant]
     Route: 065
     Dates: start: 20110329, end: 20110405
  7. CEFTAZIDIME [Concomitant]
     Route: 065
     Dates: start: 20110324, end: 20110328
  8. SHITEI [Concomitant]
     Route: 065
     Dates: start: 20110320, end: 20110408
  9. DEXAMETHASONE SODIUM PHOSPHATE [Concomitant]
     Route: 065
     Dates: start: 20110317, end: 20110323
  10. TIENAM [Concomitant]
     Route: 065
     Dates: start: 20110328, end: 20110602
  11. GABALON [Concomitant]
     Route: 065
     Dates: start: 20110324, end: 20110405
  12. MUCOSOLVAN [Concomitant]
     Route: 065
     Dates: start: 20110408, end: 20110416
  13. NEOPHAGEN [Concomitant]
     Route: 065

REACTIONS (7)
  - ANAEMIA [None]
  - MYELODYSPLASTIC SYNDROME [None]
  - PLATELET COUNT DECREASED [None]
  - PANCYTOPENIA [None]
  - WHITE BLOOD CELL COUNT DECREASED [None]
  - PNEUMONIA [None]
  - HICCUPS [None]
